FAERS Safety Report 6144869-1 (Version None)
Quarter: 2009Q2

REPORT INFORMATION
  Report Type: 
  Country: None (occurrence: None)
  Receive Date: 20090406
  Receipt Date: 20090325
  Transmission Date: 20091009
  Serious: Yes (Other)
  Sender: FDA-Public Use
  Company Number: PHHY2009CA05621

PATIENT
  Sex: Female

DRUGS (7)
  1. TEGRETOL [Suspect]
     Indication: TEMPORAL LOBE EPILEPSY
     Dosage: 1.5 TABLET DAILY
     Dates: start: 19970101
  2. TYLENOL [Interacting]
     Indication: ARTHRITIS
     Dosage: 500 MG, 1 TABLET
  3. CALCIUM [Concomitant]
  4. VITAMIN D [Concomitant]
  5. ACETAMINOPHEN [Interacting]
     Indication: HEADACHE
     Dosage: 500 MG, 2 TABLETS
  6. ACETAMINOPHEN [Interacting]
     Indication: PYREXIA
  7. ACETAMINOPHEN [Interacting]
     Indication: PAIN

REACTIONS (5)
  - CONVULSION [None]
  - DRUG INTERACTION [None]
  - HEADACHE [None]
  - PAIN [None]
  - PYREXIA [None]
